FAERS Safety Report 8974138 (Version 1)
Quarter: 2012Q4

REPORT INFORMATION
  Report Type: Spontaneous
  Country: US (occurrence: None)
  Receive Date: 20121213
  Receipt Date: 20121213
  Transmission Date: 20130627
  Serious: Yes (Hospitalization)
  Sender: FDA-Public Use
  Company Number: None

PATIENT
  Age: 60 Year
  Sex: Male

DRUGS (1)
  1. VIAGRA [Suspect]
     Dosage: 25 MG PO X 1 DOSE
     Route: 048
     Dates: start: 20120916, end: 20120916

REACTIONS (2)
  - Chest pain [None]
  - Acute myocardial infarction [None]
